FAERS Safety Report 8499937-6 (Version None)
Quarter: 2012Q3

REPORT INFORMATION
  Report Type: 
  Country: None (occurrence: None)
  Receive Date: 20120710
  Receipt Date: 20120705
  Transmission Date: 20120928
  Serious: Yes (Life-Threatening)
  Sender: FDA-Public Use
  Company Number: FR-ASTRAZENECA-2012SE45965

PATIENT
  Age: 20246 Day
  Sex: Female

DRUGS (3)
  1. SUFENTANYL [Suspect]
     Indication: ANAESTHESIA
     Dates: start: 20120224, end: 20120224
  2. CELOCURINE [Suspect]
     Indication: ANAESTHESIA
     Route: 042
     Dates: start: 20120224, end: 20120224
  3. DIPRIVAN [Suspect]
     Route: 042
     Dates: start: 20120224, end: 20120224

REACTIONS (3)
  - CARDIO-RESPIRATORY ARREST [None]
  - HYPERTENSION [None]
  - GENERALISED ERYTHEMA [None]
